FAERS Safety Report 8354498 (Version 4)
Quarter: 2012Q4

REPORT INFORMATION
  Report Type: 
  Country: US (occurrence: US)
  Receive Date: 20120125
  Receipt Date: 20120928
  Transmission Date: 20130627
  Serious: Yes (Other)
  Sender: FDA-Public Use
  Company Number: US-GILEAD-2012-0049542

PATIENT
  Age: 41 Year
  Sex: Female

DRUGS (2)
  1. COMPLERA [Suspect]
     Indication: HIV INFECTION
     Dosage: UNK Unknown, UNK
     Route: 048
     Dates: start: 20111006, end: 20120112
  2. VITAMIN D /00107901/ [Concomitant]
     Indication: VITAMIN D DEFICIENCY
     Dosage: UNK
     Dates: start: 20111004

REACTIONS (2)
  - Nephrotic syndrome [Recovered/Resolved]
  - Proteinuria [Not Recovered/Not Resolved]
